FAERS Safety Report 4310816-8 (Version None)
Quarter: 2004Q1

REPORT INFORMATION
  Report Type: 
  Country: None (occurrence: None)
  Receive Date: 20040302
  Receipt Date: 20040223
  Transmission Date: 20041129
  Serious: Yes (Hospitalization)
  Sender: FDA-Public Use
  Company Number: US-JNJFOC-20040205038

PATIENT
  Age: 67 Year
  Sex: Male

DRUGS (9)
  1. REMICADE [Suspect]
     Indication: RHEUMATOID ARTHRITIS
     Dosage: INTRAVENOUS
     Route: 042
     Dates: start: 20001215, end: 20020328
  2. CELEBREX [Concomitant]
  3. PREDNISONE [Concomitant]
  4. ASPIRIN [Concomitant]
  5. LIPITOR [Concomitant]
  6. ACETYLSALICYLIC ACID SRT [Concomitant]
  7. HYDROCODONE (HYDROCODONE) [Concomitant]
  8. LORTAB [Concomitant]
  9. TEQUIN [Concomitant]

REACTIONS (2)
  - KNEE ARTHROPLASTY [None]
  - LUNG DISORDER [None]
